FAERS Safety Report 20928175 (Version 2)
Quarter: 2022Q3

REPORT INFORMATION
  Report Type: Report from Study
  Country: CN (occurrence: CN)
  Receive Date: 20220607
  Receipt Date: 20220718
  Transmission Date: 20221026
  Serious: No
  Sender: FDA-Public Use
  Company Number: CN-GILEAD-2022-0584734

PATIENT
  Age: 73 Year
  Sex: Male

DRUGS (3)
  1. AXICABTAGENE CILOLEUCEL [Suspect]
     Active Substance: AXICABTAGENE CILOLEUCEL
     Indication: Non-Hodgkin^s lymphoma
     Dosage: 68 ML
     Route: 042
     Dates: start: 20220325, end: 20220325
  2. FLUDARABINE [Suspect]
     Active Substance: FLUDARABINE PHOSPHATE
     Indication: Lymphodepletion
     Dosage: 46.5 MG
     Route: 041
     Dates: start: 20220320
  3. CYCLOPHOSPHAMIDE [Suspect]
     Active Substance: CYCLOPHOSPHAMIDE
     Indication: Lymphodepletion
     Dosage: 775 MG
     Route: 041
     Dates: start: 20220320

REACTIONS (9)
  - Interleukin level increased [Recovered/Resolved]
  - Interferon gamma level increased [Recovered/Resolved]
  - Interleukin level increased [Not Recovered/Not Resolved]
  - Interleukin level increased [Recovered/Resolved]
  - Hypocalcaemia [Recovered/Resolved]
  - Interleukin level increased [Recovered/Resolved]
  - Interleukin-2 receptor increased [Not Recovered/Not Resolved]
  - Interleukin level increased [Recovered/Resolved]
  - Aspartate aminotransferase increased [Recovered/Resolved]

NARRATIVE: CASE EVENT DATE: 20220325
